FAERS Safety Report 8056555-1 (Version None)
Quarter: 2012Q1

REPORT INFORMATION
  Report Type: 
  Country: None (occurrence: None)
  Receive Date: 20120119
  Receipt Date: 20120111
  Transmission Date: 20120608
  Serious: Yes (Disabling, Other)
  Sender: FDA-Public Use
  Company Number: GB-NAPPMUNDI-GBR-2011-0008112

PATIENT
  Sex: Male

DRUGS (8)
  1. ALLOPURINOL [Interacting]
     Indication: GOUT
     Dosage: 300 MG, DAILY
  2. ALBUTEROL SULFATE AUTOHALER [Concomitant]
     Indication: CHRONIC OBSTRUCTIVE PULMONARY DISEASE
     Dosage: 100 MCG, QID
     Route: 048
  3. SYMBICORT [Concomitant]
     Dosage: UNK, BID
     Route: 048
  4. TIOTROPIUM [Concomitant]
     Dosage: 1 DF, DAILY
     Route: 048
  5. THEOPHYLLINE [Suspect]
     Indication: DYSPNOEA
     Dosage: 200 MG, BID
     Route: 048
  6. SPIRIVA [Concomitant]
     Indication: CHRONIC OBSTRUCTIVE PULMONARY DISEASE
     Dosage: 1 DF, DAILY
     Route: 055
  7. PREDNISOLONE [Concomitant]
     Indication: CHRONIC OBSTRUCTIVE PULMONARY DISEASE
     Dosage: 5 MG, PRN
  8. THEOPHYLLINE [Interacting]
     Dosage: 200 MG, DAILY
     Route: 048

REACTIONS (2)
  - DRUG INTERACTION [None]
  - GOUT [None]
